FAERS Safety Report 8486819-9 (Version None)
Quarter: 2012Q3

REPORT INFORMATION
  Report Type: 
  Country: None (occurrence: None)
  Receive Date: 20120704
  Receipt Date: 20120625
  Transmission Date: 20120928
  Serious: Yes (Hospitalization)
  Sender: FDA-Public Use
  Company Number: US-BRISTOL-MYERS SQUIBB COMPANY-16710790

PATIENT
  Age: 73 Year
  Sex: Female
  Weight: 48 kg

DRUGS (4)
  1. ASPIRIN [Suspect]
  2. TREPROSTINIL [Suspect]
     Indication: COR PULMONALE CHRONIC
     Dosage: 1 DF: .01UG/KG,INJECTION,STRENGTH:2.5MG/ML
     Route: 042
     Dates: start: 20120112
  3. LOVENOX [Suspect]
  4. COUMADIN [Suspect]

REACTIONS (2)
  - GASTROINTESTINAL HAEMORRHAGE [None]
  - ANAEMIA [None]
